FAERS Safety Report 6990225-3 (Version None)
Quarter: 2010Q3

REPORT INFORMATION
  Report Type: 
  Country: None (occurrence: None)
  Receive Date: 20100916
  Receipt Date: 20100517
  Transmission Date: 20110219
  Serious: Yes (Disabling)
  Sender: FDA-Public Use
  Company Number: US-PFIZER INC-2010063208

PATIENT
  Sex: Female
  Weight: 59.864 kg

DRUGS (4)
  1. LYRICA [Suspect]
     Indication: NEUROPATHY PERIPHERAL
     Dosage: 50 MG, 2X/DAY
     Route: 048
     Dates: start: 20100101
  2. LYRICA [Suspect]
     Dosage: 50MG IN MORNING AND 150MG AT NIGHT
     Route: 048
  3. ASACOL [Concomitant]
     Indication: CROHN'S DISEASE
     Dosage: 1200 MG, 2X/DAY
     Route: 048
  4. VITAMIN D3 [Concomitant]
     Dosage: UNK
     Dates: start: 20100101

REACTIONS (3)
  - FEELING ABNORMAL [None]
  - PERONEAL NERVE PALSY [None]
  - WEIGHT INCREASED [None]
